FAERS Safety Report 8836068 (Version 1)
Quarter: 2012Q4

REPORT INFORMATION
  Report Type: 
  Country: US (occurrence: US)
  Receive Date: 20121011
  Receipt Date: 20121011
  Transmission Date: 20130627
  Serious: No
  Sender: FDA-Public Use
  Company Number: US-009507513-1209USA006119

PATIENT
  Age: 27 Year
  Sex: Female
  Weight: 82.99 kg

DRUGS (1)
  1. IMPLANON [Suspect]
     Indication: CONTRACEPTION
     Dosage: UNK DF, every 3 years
     Route: 059
     Dates: start: 200811

REACTIONS (6)
  - Complication of device removal [Unknown]
  - Weight increased [Unknown]
  - Metrorrhagia [Unknown]
  - Mood swings [Unknown]
  - Incorrect drug administration duration [Unknown]
  - Medical device complication [Unknown]
